FAERS Safety Report 11165706 (Version 1)
Quarter: 2015Q2

REPORT INFORMATION
  Report Type: Spontaneous
  Country: US (occurrence: US)
  Receive Date: 20150604
  Receipt Date: 20150604
  Transmission Date: 20150821
  Serious: Yes (Other)
  Sender: FDA-Public Use
  Company Number: US-ASTRAZENECA-2015SE53236

PATIENT
  Age: 45 Year
  Sex: Female
  Weight: 61.7 kg

DRUGS (10)
  1. QUETIAPINE FUMURATE [Suspect]
     Active Substance: QUETIAPINE FUMARATE
     Indication: SLEEP DISORDER
     Route: 048
     Dates: start: 2013, end: 2014
  2. QUETIAPINE FUMURATE [Suspect]
     Active Substance: QUETIAPINE FUMARATE
     Indication: BIPOLAR DISORDER
     Route: 048
     Dates: start: 2014
  3. QUETIAPINE FUMURATE [Suspect]
     Active Substance: QUETIAPINE FUMARATE
     Indication: SLEEP DISORDER
     Dosage: 200 TO 400 MG AT NIGHT
     Route: 048
     Dates: start: 2013
  4. QUETIAPINE FUMURATE [Suspect]
     Active Substance: QUETIAPINE FUMARATE
     Indication: BIPOLAR DISORDER
     Route: 048
     Dates: start: 2013, end: 2014
  5. QUETIAPINE FUMURATE [Suspect]
     Active Substance: QUETIAPINE FUMARATE
     Indication: DEPRESSION
     Route: 048
     Dates: start: 2013, end: 2014
  6. QUETIAPINE FUMURATE [Suspect]
     Active Substance: QUETIAPINE FUMARATE
     Indication: SLEEP DISORDER
     Route: 048
     Dates: start: 2014
  7. GABAPENTIN. [Concomitant]
     Active Substance: GABAPENTIN
  8. QUETIAPINE FUMURATE [Suspect]
     Active Substance: QUETIAPINE FUMARATE
     Indication: DEPRESSION
     Route: 048
     Dates: start: 2014
  9. QUETIAPINE FUMURATE [Suspect]
     Active Substance: QUETIAPINE FUMARATE
     Indication: BIPOLAR DISORDER
     Dosage: 200 TO 400 MG AT NIGHT
     Route: 048
     Dates: start: 2013
  10. QUETIAPINE FUMURATE [Suspect]
     Active Substance: QUETIAPINE FUMARATE
     Indication: DEPRESSION
     Dosage: 200 TO 400 MG AT NIGHT
     Route: 048
     Dates: start: 2013

REACTIONS (22)
  - Obsessive-compulsive disorder [Unknown]
  - Soliloquy [Unknown]
  - Sleep disorder [Unknown]
  - Rheumatoid arthritis [Unknown]
  - Abnormal behaviour [Unknown]
  - Abnormal dreams [Unknown]
  - Intentional product misuse [Unknown]
  - Crying [Unknown]
  - Hunger [Unknown]
  - Contusion [Unknown]
  - Peripheral swelling [Unknown]
  - Weight increased [Unknown]
  - Retinal vascular thrombosis [Unknown]
  - Screaming [Unknown]
  - Oedema peripheral [Unknown]
  - Intentional self-injury [Unknown]
  - Osteoarthritis [Unknown]
  - Nocturnal dyspnoea [Unknown]
  - Muscle rupture [Unknown]
  - Speech disorder [Unknown]
  - Thrombosis [Unknown]
  - Gait disturbance [Unknown]

NARRATIVE: CASE EVENT DATE: 2013
